FAERS Safety Report 4803291-8 (Version None)
Quarter: 2005Q4

REPORT INFORMATION
  Report Type: 
  Country: None (occurrence: None)
  Receive Date: 20051013
  Receipt Date: 20050923
  Transmission Date: 20060501
  Serious: Yes (Hospitalization, Other)
  Sender: FDA-Public Use
  Company Number: US_0509121436

PATIENT
  Age: 47 Year
  Weight: 78.9259 kg

DRUGS (3)
  1. ZYPREXA [Suspect]
     Indication: BIPOLAR DISORDER
     Dates: start: 20020820, end: 20050227
  2. GEODON [Concomitant]
  3. TRIAMCINOLONE [Concomitant]

REACTIONS (20)
  - ABDOMINAL PAIN UPPER [None]
  - ALANINE AMINOTRANSFERASE INCREASED [None]
  - ASPARTATE AMINOTRANSFERASE INCREASED [None]
  - ASTHENIA [None]
  - BRONCHITIS [None]
  - CARDIAC FAILURE CONGESTIVE [None]
  - CHEST PAIN [None]
  - COLLAGEN-VASCULAR DISEASE [None]
  - DIABETES MELLITUS [None]
  - DIARRHOEA [None]
  - DYSPHONIA [None]
  - DYSPNOEA [None]
  - GLOBULINS INCREASED [None]
  - HEPATOMEGALY [None]
  - NAUSEA [None]
  - PAIN IN EXTREMITY [None]
  - PNEUMONIA [None]
  - PROTEIN TOTAL INCREASED [None]
  - VAGINAL CANDIDIASIS [None]
  - VOMITING [None]
